FAERS Safety Report 6657017-6 (Version None)
Quarter: 2010Q1

REPORT INFORMATION
  Report Type: 
  Country: None (occurrence: None)
  Receive Date: 20100329
  Receipt Date: 20100329
  Transmission Date: 20100710
  Serious: Yes (Death, Hospitalization)
  Sender: FDA-Public Use
  Company Number: None

PATIENT
  Age: 50 Year
  Sex: Female
  Weight: 61.6892 kg

DRUGS (2)
  1. ONTAK [Suspect]
     Indication: OVARIAN CANCER
     Dosage: 12MCG/M2 = 770MCG TOTAL
     Dates: start: 20090922
  2. ONTAK [Suspect]
     Indication: OVARIAN CANCER
     Dosage: 12MCG/M2 = 770MCG TOTAL
     Dates: start: 20091012

REACTIONS (10)
  - ABDOMINAL PAIN [None]
  - ASTHENIA [None]
  - DYSPNOEA [None]
  - MALIGNANT NEOPLASM PROGRESSION [None]
  - METASTASES TO LIVER [None]
  - METASTASES TO LYMPH NODES [None]
  - NAUSEA [None]
  - PLEURAL EFFUSION [None]
  - RESPIRATORY FAILURE [None]
  - VOMITING [None]
